FAERS Safety Report 4621940-4 (Version None)
Quarter: 2005Q1

REPORT INFORMATION
  Report Type: 
  Country: None (occurrence: None)
  Receive Date: 20050329
  Receipt Date: 20031125
  Transmission Date: 20050727
  Serious: Yes (Other)
  Sender: FDA-Public Use
  Company Number: 10085

PATIENT
  Age: 86 Year
  Sex: Female

DRUGS (6)
  1. METHOTREXATE [Suspect]
     Dosage: 1.429 MG DAILY
     Dates: start: 20020529, end: 20030812
  2. LEFLUNOMIDE [Suspect]
     Dosage: 100 MG DAILY
     Dates: start: 20030731, end: 20030802
  3. LEFLUNOMIDE [Suspect]
     Dosage: 10 MG DAILY
     Dates: start: 20030803, end: 20030808
  4. CALCIUM CARBONATE [Concomitant]
  5. CONJUGATED ESTROGENS [Concomitant]
  6. FOLIC ACID [Concomitant]

REACTIONS (3)
  - CONDITION AGGRAVATED [None]
  - JAUNDICE CHOLESTATIC [None]
  - RHEUMATOID ARTHRITIS [None]
